FAERS Safety Report 21686681 (Version 1)
Quarter: 2022Q4

REPORT INFORMATION
  Report Type: Spontaneous
  Country: CN (occurrence: None)
  Receive Date: 20221206
  Receipt Date: 20221206
  Transmission Date: 20230113
  Serious: Yes (Other)
  Sender: FDA-Public Use
  Company Number: CN-MDD US Operations-SUP202211-003930

PATIENT
  Age: 13 Year
  Sex: Male

DRUGS (6)
  1. OXCARBAZEPINE [Suspect]
     Active Substance: OXCARBAZEPINE
     Indication: Seizure
     Dosage: 0.075
     Dates: start: 201705, end: 20210812
  2. OXCARBAZEPINE [Suspect]
     Active Substance: OXCARBAZEPINE
     Dosage: 0.15
     Dates: end: 20210812
  3. VALPROIC ACID [Concomitant]
     Active Substance: VALPROIC ACID
     Dates: start: 20160325
  4. VALPROIC ACID [Concomitant]
     Active Substance: VALPROIC ACID
     Dosage: 0.5
  5. Valproic acid+Levetiracetam [Concomitant]
     Dosage: VALPROIC ACID 32  MG + LEVETIRACETAM
     Dates: start: 20160720
  6. Valproic acid+Levetiracetam [Concomitant]
     Dosage: 0.5/0.25

REACTIONS (1)
  - Long QT syndrome [Recovered/Resolved]

NARRATIVE: CASE EVENT DATE: 20210812
